FAERS Safety Report 25321125 (Version 1)
Quarter: 2025Q2

REPORT INFORMATION
  Report Type: Spontaneous
  Country: US (occurrence: US)
  Receive Date: 20250515
  Receipt Date: 20250515
  Transmission Date: 20250717
  Serious: Yes (Hospitalization)
  Sender: MERCK SHARP & DOHME LLC
  Company Number: US-009507513-2285526

PATIENT
  Age: 57 Year
  Sex: Female
  Weight: 59.4 kg

DRUGS (31)
  1. SOTATERCEPT [Suspect]
     Active Substance: SOTATERCEPT
     Indication: Product used for unknown indication
  2. SOTATERCEPT [Suspect]
     Active Substance: SOTATERCEPT
  3. SOTATERCEPT [Suspect]
     Active Substance: SOTATERCEPT
  4. SOTATERCEPT [Suspect]
     Active Substance: SOTATERCEPT
  5. REMODULIN [Suspect]
     Active Substance: TREPROSTINIL
     Indication: Pulmonary arterial hypertension
     Dates: start: 20241011
  6. REMODULIN [Suspect]
     Active Substance: TREPROSTINIL
     Indication: Pulmonary arterial hypertension
  7. METOCLOPRAMIDE HYDROCHLORIDE [Concomitant]
     Active Substance: METOCLOPRAMIDE HYDROCHLORIDE
  8. CALCIUM CITRATE\CHOLECALCIFEROL [Concomitant]
     Active Substance: CALCIUM CITRATE\CHOLECALCIFEROL
  9. SINGULAIR [Concomitant]
     Active Substance: MONTELUKAST SODIUM
  10. ADDERALL [Concomitant]
     Active Substance: AMPHETAMINE ASPARTATE\AMPHETAMINE SULFATE\DEXTROAMPHETAMINE SACCHARATE\DEXTROAMPHETAMINE SULFATE
  11. FLUOXETINE HYDROCHLORIDE [Concomitant]
     Active Substance: FLUOXETINE HYDROCHLORIDE
  12. PANTOPRAZOLE SODIUM [Concomitant]
     Active Substance: PANTOPRAZOLE SODIUM
  13. ACETAZOLAMIDE [Concomitant]
     Active Substance: ACETAZOLAMIDE
  14. PROLIA [Concomitant]
     Active Substance: DENOSUMAB
  15. TIZANIDINE HYDROCHLORIDE [Concomitant]
     Active Substance: TIZANIDINE HYDROCHLORIDE
  16. SODIUM CHLORIDE [Concomitant]
     Active Substance: SODIUM CHLORIDE
  17. ALBUTEROL SULFATE [Concomitant]
     Active Substance: ALBUTEROL SULFATE
  18. MINERALS\VITAMINS [Concomitant]
     Active Substance: MINERALS\VITAMINS
  19. HYDROXYCHLOROQUINE SULFATE [Concomitant]
     Active Substance: HYDROXYCHLOROQUINE SULFATE
  20. METHYLPREDNISOLONE [Concomitant]
     Active Substance: METHYLPREDNISOLONE
  21. FLUCONAZOLE [Concomitant]
     Active Substance: FLUCONAZOLE
  22. NURTEC ODT [Concomitant]
     Active Substance: RIMEGEPANT SULFATE
  23. LOMOTIL [Concomitant]
     Active Substance: ATROPINE SULFATE\DIPHENOXYLATE HYDROCHLORIDE
  24. OXYGEN [Concomitant]
     Active Substance: OXYGEN
  25. Colace-t [Concomitant]
  26. MIDODRINE HYDROCHLORIDE [Concomitant]
     Active Substance: MIDODRINE HYDROCHLORIDE
  27. ALDACTONE [Concomitant]
     Active Substance: SPIRONOLACTONE
  28. ONDANSETRON HYDROCHLORIDE [Concomitant]
     Active Substance: ONDANSETRON HYDROCHLORIDE
  29. VITAMIN D3 [Concomitant]
     Active Substance: CHOLECALCIFEROL
  30. MINERALS\VITAMINS [Concomitant]
     Active Substance: MINERALS\VITAMINS
  31. AMBRISENTAN [Concomitant]
     Active Substance: AMBRISENTAN

REACTIONS (3)
  - Loss of consciousness [Recovered/Resolved with Sequelae]
  - Spinal fracture [Unknown]
  - Fall [Recovered/Resolved with Sequelae]

NARRATIVE: CASE EVENT DATE: 20250401
